FAERS Safety Report 6519890-1 (Version None)
Quarter: 2009Q4

REPORT INFORMATION
  Report Type: 
  Country: None (occurrence: None)
  Receive Date: 20091229
  Receipt Date: 20091216
  Transmission Date: 20100525
  Serious: Yes (Other)
  Sender: FDA-Public Use
  Company Number: US-JNJCH-2009032854

PATIENT
  Age: 15 Year
  Sex: Male

DRUGS (1)
  1. DEXTROMETHORPHAN [Suspect]
     Indication: DRUG USE FOR UNKNOWN INDICATION
     Dosage: TEXT:300MG IN THE EVENING AND IN THE MORNING
     Route: 048

REACTIONS (6)
  - APNOEA [None]
  - CONVULSION [None]
  - CYANOSIS [None]
  - DRUG TOXICITY [None]
  - MYDRIASIS [None]
  - NYSTAGMUS [None]
